FAERS Safety Report 9647916 (Version 2)
Quarter: 2013Q4

REPORT INFORMATION
  Report Type: Spontaneous
  Country: US (occurrence: US)
  Receive Date: 20131028
  Receipt Date: 20131118
  Transmission Date: 20140711
  Serious: No
  Sender: FDA-Public Use
  Company Number: US-PFIZER INC-2013304303

PATIENT
  Age: 79 Year
  Sex: Female

DRUGS (5)
  1. EFFEXOR [Suspect]
     Indication: DEPRESSION
     Dosage: 37.5 MG, 1X/DAY
  2. EFFEXOR [Suspect]
     Dosage: 112.5 MG, 1X/DAY (112.5 MG, 1 IN 1D)
     Dates: start: 20131010, end: 20131010
  3. NAMENDA [Suspect]
     Indication: DEMENTIA
     Dosage: 5 MG, 1X/DAY (5 MG, 1 IN 1 D)
     Route: 048
     Dates: start: 20131009, end: 20131009
  4. NAMENDA [Suspect]
     Dosage: 15 MG, 1X/DAY (15 MG, 1 IN 1 D)
     Route: 048
     Dates: start: 20131010, end: 20131010
  5. NAMENDA [Suspect]
     Dosage: 5 MG, 1X/DAY (5 MG, 1 IN 1 D)
     Route: 048
     Dates: start: 20131011

REACTIONS (3)
  - Accidental overdose [Recovered/Resolved]
  - Medication error [Recovered/Resolved]
  - Confusional state [Recovered/Resolved]
